FAERS Safety Report 4838891-2 (Version None)
Quarter: 2005Q4

REPORT INFORMATION
  Report Type: 
  Country: None (occurrence: None)
  Receive Date: 20051129
  Receipt Date: 20050923
  Transmission Date: 20060501
  Serious: No
  Sender: FDA-Public Use
  Company Number: US-GLAXOSMITHKLINE-A0575703A

PATIENT
  Sex: Female

DRUGS (10)
  1. LOTRONEX [Suspect]
     Indication: IRRITABLE BOWEL SYNDROME
     Dosage: 1TAB TWICE PER DAY
     Route: 048
  2. OMEPRAZOLE [Concomitant]
  3. FOLIC ACID [Concomitant]
  4. ZOCOR [Concomitant]
  5. NITROGLYCERIN [Concomitant]
  6. PLAVIX [Concomitant]
  7. COZAAR [Concomitant]
  8. AMARYL [Concomitant]
  9. AMBIEN [Concomitant]
  10. EFFEXOR XR [Concomitant]

REACTIONS (2)
  - JOINT STIFFNESS [None]
  - MUSCULOSKELETAL STIFFNESS [None]
